FAERS Safety Report 7718869-1 (Version None)
Quarter: 2011Q3

REPORT INFORMATION
  Report Type: 
  Country: None (occurrence: None)
  Receive Date: 20110824
  Receipt Date: 20110809
  Transmission Date: 20111222
  Serious: Yes (Hospitalization)
  Sender: FDA-Public Use
  Company Number: 2011-283

PATIENT
  Age: 52 Year
  Sex: Male

DRUGS (9)
  1. PRIALT [Suspect]
     Dosage: 0.05;0.371;0.28;0.375;0,291;0.208  UG, ONCE/HOUR, INTRATHECAL
     Route: 039
     Dates: start: 20090101, end: 20090101
  2. PRIALT [Suspect]
     Dosage: 0.05;0.371;0.28;0.375;0,291;0.208  UG, ONCE/HOUR, INTRATHECAL
     Route: 039
     Dates: start: 20100101, end: 20100101
  3. PRIALT [Suspect]
     Dosage: 0.05;0.371;0.28;0.375;0,291;0.208  UG, ONCE/HOUR, INTRATHECAL
     Route: 039
     Dates: start: 20090101, end: 20090903
  4. PRIALT [Suspect]
     Dosage: 0.05;0.371;0.28;0.375;0,291;0.208  UG, ONCE/HOUR, INTRATHECAL
     Route: 039
     Dates: start: 20090601
  5. PRIALT [Suspect]
     Dosage: 0.05;0.371;0.28;0.375;0,291;0.208  UG, ONCE/HOUR, INTRATHECAL
     Route: 039
     Dates: start: 20091207, end: 20100101
  6. PRIALT [Suspect]
     Dosage: 0.05;0.371;0.28;0.375;0,291;0.208  UG, ONCE/HOUR, INTRATHECAL
     Route: 039
     Dates: end: 20090828
  7. LAXOBERAL (SODIUM PICOSULFATE) [Concomitant]
  8. PALLADONE [Concomitant]
  9. IBUPROFEN [Suspect]
     Dosage: ORAL
     Route: 048

REACTIONS (10)
  - INTESTINAL HAEMORRHAGE [None]
  - AMAUROSIS [None]
  - HOSPITALISATION [None]
  - COLONIC POLYP [None]
  - PARESIS [None]
  - PSYCHOTIC DISORDER [None]
  - ANAL HAEMORRHAGE [None]
  - CONFUSIONAL STATE [None]
  - GASTROINTESTINAL MUCOSAL DISORDER [None]
  - GASTROINTESTINAL TRACT ADENOMA [None]
